FAERS Safety Report 5781518-6 (Version None)
Quarter: 2008Q2

REPORT INFORMATION
  Report Type: 
  Country: None (occurrence: None)
  Receive Date: 20080623
  Receipt Date: 20070330
  Transmission Date: 20081010
  Serious: No
  Sender: FDA-Public Use
  Company Number: US-ASTRAZENECA-2002UW03999

PATIENT
  Age: 34 Year
  Sex: Female
  Weight: 56.4 kg

DRUGS (10)
  1. ENTOCORT EC [Suspect]
     Indication: CROHN'S DISEASE
     Route: 048
     Dates: start: 20020316, end: 20020326
  2. ENTOCORT EC [Suspect]
     Route: 048
     Dates: start: 20020327
  3. CIPRO [Concomitant]
  4. ASACOL [Concomitant]
  5. MACROBID [Concomitant]
  6. MS CONTIN [Concomitant]
  7. ROXICODONE [Concomitant]
  8. BENTYL [Concomitant]
  9. VALIUM [Concomitant]
  10. PENTASA [Concomitant]

REACTIONS (3)
  - AMENORRHOEA [None]
  - HEADACHE [None]
  - THROAT IRRITATION [None]
